FAERS Safety Report 4612350-4 (Version None)
Quarter: 2005Q1

REPORT INFORMATION
  Report Type: 
  Country: None (occurrence: None)
  Receive Date: 20050316
  Receipt Date: 20050302
  Transmission Date: 20050727
  Serious: Yes (Other)
  Sender: FDA-Public Use
  Company Number: US014796

PATIENT
  Sex: Female

DRUGS (9)
  1. GABITRIL [Suspect]
     Indication: HEADACHE
     Dosage: 4 MG TID ORAL
     Route: 048
     Dates: start: 20040830, end: 20040926
  2. GABITRIL [Suspect]
     Indication: HEADACHE
     Dosage: 10 MG TID ORAL
     Route: 048
     Dates: start: 20040927, end: 20040930
  3. GABITRIL [Suspect]
     Indication: HEADACHE
     Dosage: 12 MG TID ORAL
     Route: 048
     Dates: start: 20041001, end: 20041003
  4. NEURONTIN [Concomitant]
  5. PAXIL [Concomitant]
  6. CYMBALTA [Concomitant]
  7. KLONOPIN [Concomitant]
  8. RITALIN [Concomitant]
  9. INDOCIN [Concomitant]

REACTIONS (5)
  - AGNOSIA [None]
  - AMNESIA [None]
  - CONVULSION [None]
  - FALL [None]
  - LOSS OF CONSCIOUSNESS [None]
